FAERS Safety Report 16411715 (Version 1)
Quarter: 2019Q2

REPORT INFORMATION
  Report Type: Report from Study
  Country: GB (occurrence: GB)
  Receive Date: 20190610
  Receipt Date: 20190610
  Transmission Date: 20190711
  Serious: Yes (Hospitalization)
  Sender: FDA-Public Use
  Company Number: GB-MYLANLABS-2019M1053607

PATIENT
  Age: 43 Year
  Sex: Female
  Weight: 80.6 kg

DRUGS (32)
  1. PERTUZUMAB. [Suspect]
     Active Substance: PERTUZUMAB
     Indication: BREAST CANCER METASTATIC
     Dosage: 840 MILLIGRAM, Q3W
     Route: 042
     Dates: start: 20150226
  2. SALBUTAMOL [Concomitant]
     Active Substance: ALBUTEROL
     Dosage: 2.5 MILLIGRAM(NEBULIZED)
     Dates: start: 201504
  3. DOXYCYCLINE. [Concomitant]
     Active Substance: DOXYCYCLINE
     Indication: MALAISE
     Dosage: UNK
     Route: 048
     Dates: start: 20150603, end: 20150608
  4. DEXAMETHASONE. [Concomitant]
     Active Substance: DEXAMETHASONE
     Indication: CONFUSIONAL STATE
     Dosage: 1 DOSAGE FORM, QD
     Route: 048
     Dates: start: 201502, end: 20150823
  5. LORAZEPAM. [Concomitant]
     Active Substance: LORAZEPAM
     Dosage: 1 MILLIGRAM
     Route: 048
     Dates: start: 201502
  6. HYDROCORTISONE. [Concomitant]
     Active Substance: HYDROCORTISONE
     Dosage: 100 MILLIGRAM, ONCE
     Route: 042
     Dates: start: 20150226, end: 20150806
  7. TRAMADOL. [Concomitant]
     Active Substance: TRAMADOL
     Dosage: 50 MILLIGRAM
     Route: 048
     Dates: start: 201502
  8. CASSIA ACUTIFOLIA [Concomitant]
     Dosage: 7.5 MILLIGRAM
     Route: 048
     Dates: start: 201504
  9. PARACETAMOL [Concomitant]
     Active Substance: ACETAMINOPHEN
     Indication: HEADACHE
     Dosage: 2000 MILLIGRAM
     Route: 048
     Dates: start: 201502
  10. PARACETAMOL [Concomitant]
     Active Substance: ACETAMINOPHEN
     Dosage: 4 GRAM, QD
     Route: 048
     Dates: start: 20150823, end: 20150825
  11. ONDANSETRON [Concomitant]
     Active Substance: ONDANSETRON
     Dosage: 48 MILLIGRAM
     Route: 065
     Dates: start: 201502
  12. DALTEPARIN [Concomitant]
     Active Substance: DALTEPARIN
     Dosage: 15000 UNIT
     Route: 058
     Dates: start: 201504
  13. PERTUZUMAB. [Suspect]
     Active Substance: PERTUZUMAB
     Dosage: 420 MILLIGRAM, QW
     Route: 042
     Dates: end: 20150508
  14. SALBUTAMOL [Concomitant]
     Active Substance: ALBUTEROL
     Indication: MALAISE
     Dosage: INHALATION
     Route: 065
     Dates: start: 20150602
  15. MORPHINE SULFATE. [Concomitant]
     Active Substance: MORPHINE SULFATE
     Dosage: 5 MILLILITER
     Route: 048
     Dates: start: 201502
  16. OXYGEN. [Concomitant]
     Active Substance: OXYGEN
     Dosage: 8 LITER(INHALANT)
     Dates: start: 201502
  17. DEXAMETHASONE. [Concomitant]
     Active Substance: DEXAMETHASONE
     Dosage: UNK
     Route: 042
     Dates: start: 20150823, end: 20150823
  18. CHLORPHENAMINE [Concomitant]
     Active Substance: CHLORPHENIRAMINE MALEATE
     Dosage: 10 MILLIGRAM, ONCE
     Route: 042
     Dates: start: 20150226, end: 20150806
  19. TRASTUZUMAB. [Suspect]
     Active Substance: TRASTUZUMAB
     Dosage: 290 MILLIGRAM, Q3W
     Route: 042
     Dates: start: 20150604
  20. DOXYCYCLINE. [Concomitant]
     Active Substance: DOXYCYCLINE
     Dosage: 1 DOSAGE FORM, QD
     Dates: start: 201505
  21. METOCLOPRAMIDE. [Concomitant]
     Active Substance: METOCLOPRAMIDE
     Dosage: 30 MILLIGRAM, QD
     Route: 048
     Dates: start: 20150226, end: 201508
  22. PACLITAXEL. [Suspect]
     Active Substance: PACLITAXEL
     Indication: BREAST CANCER METASTATIC
     Dosage: MOST RECENT DOSE RECEIVED ON 22/05/2015
     Route: 042
     Dates: start: 20150226, end: 20150522
  23. BISOPROLOL [Concomitant]
     Active Substance: BISOPROLOL
     Dosage: 5 MILLIGRAM, QD
     Route: 048
     Dates: start: 20150815
  24. OXYGEN. [Concomitant]
     Active Substance: OXYGEN
     Dosage: UNK
     Route: 065
     Dates: start: 20150410
  25. TRASTUZUMAB. [Suspect]
     Active Substance: TRASTUZUMAB
     Indication: BREAST CANCER METASTATIC
     Dosage: 600 MILLIGRAM, Q3W
     Route: 058
     Dates: start: 20150226, end: 20150508
  26. BISOPROLOL [Concomitant]
     Active Substance: BISOPROLOL
     Dosage: UNK
     Route: 065
     Dates: start: 201504, end: 20150810
  27. BISOPROLOL [Concomitant]
     Active Substance: BISOPROLOL
     Dosage: 5 MILLIGRAM, QD
     Route: 048
     Dates: start: 20150811, end: 20150812
  28. GRANISETRON [Concomitant]
     Active Substance: GRANISETRON
     Dosage: 1 MILLIGRAM, ONCE
     Route: 042
     Dates: start: 20150226, end: 20150806
  29. LACTULOSE. [Concomitant]
     Active Substance: LACTULOSE
     Dosage: 15 MILLILITER
     Route: 048
     Dates: start: 20150127, end: 20150801
  30. ADENOSINE. [Concomitant]
     Active Substance: ADENOSINE
     Dosage: UNK
     Route: 042
     Dates: start: 20150808, end: 20150808
  31. ONDANSETRON [Concomitant]
     Active Substance: ONDANSETRON
     Dosage: 16 MEGABECQUEREL, QD
     Route: 048
     Dates: start: 20150226, end: 20150424
  32. ZOPICLONE [Concomitant]
     Active Substance: ZOPICLONE
     Dosage: 3.75 MILLIGRAM
     Route: 048
     Dates: start: 201502

REACTIONS (17)
  - Condition aggravated [Not Recovered/Not Resolved]
  - Vomiting [Unknown]
  - Dry mouth [Not Recovered/Not Resolved]
  - Confusional state [Not Recovered/Not Resolved]
  - Nausea [Recovered/Resolved]
  - Headache [Not Recovered/Not Resolved]
  - Depressed mood [Not Recovered/Not Resolved]
  - Dyspepsia [Not Recovered/Not Resolved]
  - Tachycardia [Recovered/Resolved with Sequelae]
  - Incontinence [Not Recovered/Not Resolved]
  - Lower respiratory tract infection [Recovered/Resolved with Sequelae]
  - Dizziness [Not Recovered/Not Resolved]
  - Supraventricular tachycardia [Recovered/Resolved with Sequelae]
  - Dyspnoea [Not Recovered/Not Resolved]
  - Pneumonia [Not Recovered/Not Resolved]
  - Malaise [Not Recovered/Not Resolved]
  - Rash [Not Recovered/Not Resolved]

NARRATIVE: CASE EVENT DATE: 20150410
